FAERS Safety Report 9307879 (Version 1)
Quarter: 2013Q2

REPORT INFORMATION
  Report Type: Spontaneous
  Country: FR (occurrence: FR)
  Receive Date: 20130524
  Receipt Date: 20130524
  Transmission Date: 20140414
  Serious: Yes (Death, Hospitalization)
  Sender: FDA-Public Use
  Company Number: FR-BRISTOL-MYERS SQUIBB COMPANY-18904003

PATIENT
  Age: 82 Year
  Sex: Female
  Weight: 40 kg

DRUGS (6)
  1. COUMADIN TABS 2 MG [Suspect]
     Indication: ATRIAL FLUTTER
     Dosage: 1DF= ONE AND HALF TAB
     Route: 048
     Dates: end: 20130412
  2. ALDACTONE [Concomitant]
     Dosage: FORMULATION-ALDACTONE 25
  3. INEXIUM [Concomitant]
  4. CACIT D3 [Concomitant]
  5. COZAAR [Concomitant]
  6. ACTONEL [Concomitant]
     Dosage: FORMULATION-ACTONEL 35 , TAB

REACTIONS (6)
  - Haemothorax [Fatal]
  - Cardio-respiratory arrest [Fatal]
  - Arterial haemorrhage [Fatal]
  - Shock haemorrhagic [Fatal]
  - Dizziness [Unknown]
  - Fall [Unknown]
